FAERS Safety Report 25378498 (Version 2)
Quarter: 2025Q4

REPORT INFORMATION
  Report Type: Spontaneous
  Country: EU (occurrence: EU)
  Receive Date: 20250530
  Receipt Date: 20251029
  Transmission Date: 20260118
  Serious: Yes (Death, Hospitalization, Other)
  Sender: AUROBINDO
  Company Number: EU-TOWA-202203692

PATIENT
  Age: 76 Year
  Sex: Female

DRUGS (1)
  1. METFORMIN [Suspect]
     Active Substance: METFORMIN HYDROCHLORIDE
     Indication: Type 2 diabetes mellitus
     Dosage: 1000 MILLIGRAM, TWO TIMES A DAY ((2X/DAY)
     Route: 065

REACTIONS (14)
  - Lactic acidosis [Fatal]
  - Organ failure [Fatal]
  - Hyperlactacidaemia [Fatal]
  - Metabolic acidosis [Fatal]
  - Loss of consciousness [Recovered/Resolved]
  - Arrhythmia [Recovered/Resolved]
  - Cardio-respiratory arrest [Recovered/Resolved]
  - Bradycardia [Recovered/Resolved]
  - Hypotension [Recovered/Resolved]
  - Hypoglycaemia [Recovered/Resolved]
  - Renal impairment [Recovered/Resolved]
  - Vomiting [Recovered/Resolved]
  - Malaise [Recovered/Resolved]
  - Diarrhoea [Recovered/Resolved]
